FAERS Safety Report 10138002 (Version 1)
Quarter: 2014Q2

REPORT INFORMATION
  Report Type: Spontaneous
  Country: GB (occurrence: GB)
  Receive Date: 20140429
  Receipt Date: 20140429
  Transmission Date: 20141212
  Serious: Yes (Hospitalization)
  Sender: FDA-Public Use
  Company Number: GB-JNJFOC-20140419027

PATIENT
  Age: 73 Year
  Sex: Male

DRUGS (7)
  1. XARELTO [Suspect]
     Indication: EMBOLISM VENOUS
     Route: 065
     Dates: start: 20131025
  2. XARELTO [Suspect]
     Indication: THROMBOSIS
     Route: 065
     Dates: start: 20131025
  3. PARACETAMOL [Concomitant]
     Route: 065
  4. ACICLOVIR [Concomitant]
     Route: 065
  5. NYSTATIN [Concomitant]
     Route: 065
  6. ADCAL D3 [Concomitant]
     Route: 065
  7. RANITIDINE [Concomitant]
     Route: 065

REACTIONS (3)
  - Rash maculo-papular [Recovered/Resolved]
  - Lower respiratory tract infection [Recovered/Resolved]
  - Product taste abnormal [Unknown]
